FAERS Safety Report 7943153-0 (Version None)
Quarter: 2011Q4

REPORT INFORMATION
  Report Type: 
  Country: None (occurrence: None)
  Receive Date: 20111128
  Receipt Date: 20111117
  Transmission Date: 20120403
  Serious: Yes (Other)
  Sender: FDA-Public Use
  Company Number: PHHY2011FR101330

PATIENT
  Sex: Male

DRUGS (2)
  1. AFINITOR [Suspect]
     Indication: RENAL CANCER METASTATIC
     Dosage: 10 MG, DAILY
  2. AFINITOR [Suspect]
     Dosage: 5 MG, DAILY

REACTIONS (2)
  - PANCREATITIS [None]
  - PANCREATIC ENZYMES INCREASED [None]
